FAERS Safety Report 8400762-2 (Version None)
Quarter: 2012Q2

REPORT INFORMATION
  Report Type: 
  Country: None (occurrence: None)
  Receive Date: 20120531
  Receipt Date: 20120525
  Transmission Date: 20120825
  Serious: Yes (Death, Life-Threatening, Hospitalization, Other)
  Sender: FDA-Public Use
  Company Number: DE-MERCK-1201DEU00059

PATIENT
  Age: 61 Year
  Sex: Male
  Weight: 85 kg

DRUGS (4)
  1. RAMIPRIL [Concomitant]
     Route: 048
  2. JANUVIA [Suspect]
     Indication: TYPE 2 DIABETES MELLITUS
     Route: 048
     Dates: start: 20110701, end: 20120101
  3. GLYBURIDE [Concomitant]
     Indication: TYPE 2 DIABETES MELLITUS
     Route: 048
     Dates: start: 20110701
  4. GLIMEPIRIDE [Concomitant]
     Route: 048

REACTIONS (22)
  - DYSPHAGIA [None]
  - DEHYDRATION [None]
  - PLEURAL EFFUSION [None]
  - PORTAL VEIN THROMBOSIS [None]
  - INFECTION [None]
  - GASTROOESOPHAGEAL REFLUX DISEASE [None]
  - HYDROCHOLECYSTIS [None]
  - PANCREATITIS NECROTISING [None]
  - STAPHYLOCOCCAL SEPSIS [None]
  - PERITONITIS [None]
  - OPEN WOUND [None]
  - OESOPHAGITIS [None]
  - HYPERTENSIVE HEART DISEASE [None]
  - ILEUS PARALYTIC [None]
  - ACIDOSIS [None]
  - GASTRITIS HAEMORRHAGIC [None]
  - HAEMORRHAGIC ANAEMIA [None]
  - HEPATIC STEATOSIS [None]
  - MULTI-ORGAN FAILURE [None]
  - SYSTEMIC INFLAMMATORY RESPONSE SYNDROME [None]
  - ASCITES [None]
  - OESOPHAGEAL ULCER [None]
